FAERS Safety Report 23603179 (Version 2)
Quarter: 2024Q1

REPORT INFORMATION
  Report Type: Spontaneous
  Country: US (occurrence: None)
  Receive Date: 20240307
  Receipt Date: 20240318
  Transmission Date: 20240409
  Serious: No
  Sender: FDA-Public Use
  Company Number: US-Encube-000613

PATIENT
  Age: 79 Year
  Sex: Female

DRUGS (1)
  1. CLOBETASOL PROPIONATE [Suspect]
     Active Substance: CLOBETASOL PROPIONATE
     Indication: Eczema
     Dosage: USED IT LESS THAN TWO WEEKS
     Dates: start: 202311, end: 20231113

REACTIONS (10)
  - Erythema [Not Recovered/Not Resolved]
  - Eye pruritus [Unknown]
  - Eye irritation [Unknown]
  - Swelling face [Unknown]
  - Rash pruritic [Unknown]
  - Drug hypersensitivity [Not Recovered/Not Resolved]
  - Eye swelling [Unknown]
  - Skin exfoliation [Unknown]
  - Skin discolouration [Unknown]
  - Peripheral swelling [Unknown]

NARRATIVE: CASE EVENT DATE: 20230101
